FAERS Safety Report 7071390-9 (Version None)
Quarter: 2010Q4

REPORT INFORMATION
  Report Type: 
  Country: None (occurrence: None)
  Receive Date: 20101029
  Receipt Date: 20100622
  Transmission Date: 20110411
  Serious: No
  Sender: FDA-Public Use
  Company Number: A0711955A

PATIENT
  Age: 89 Year
  Sex: Male

DRUGS (8)
  1. ADVAIR DISKUS 100/50 [Suspect]
     Indication: CHRONIC OBSTRUCTIVE PULMONARY DISEASE
     Dosage: 1PUFF TWICE PER DAY
     Route: 055
     Dates: start: 20071201
  2. SYNTHROID [Concomitant]
  3. SPIRIVA [Concomitant]
  4. CALTRATE [Concomitant]
  5. PROCARDIA [Concomitant]
  6. OXYGEN [Concomitant]
  7. NEBULIZER [Concomitant]
  8. ZOLOFT [Concomitant]
     Indication: ANXIETY
     Route: 048

REACTIONS (5)
  - DIZZINESS [None]
  - DYSPHONIA [None]
  - LUNG DISORDER [None]
  - OEDEMA PERIPHERAL [None]
  - WEIGHT INCREASED [None]
